FAERS Safety Report 8529827-1 (Version None)
Quarter: 2012Q3

REPORT INFORMATION
  Report Type: 
  Country: None (occurrence: None)
  Receive Date: 20120723
  Receipt Date: 20120713
  Transmission Date: 20120928
  Serious: Yes (Other)
  Sender: FDA-Public Use
  Company Number: JP-ASTELLAS-2012JP006605

PATIENT
  Age: 22 Year
  Sex: Female

DRUGS (2)
  1. PROGRAF [Suspect]
     Indication: COLITIS ULCERATIVE
     Route: 065
  2. CORTICOSTEROID NOS [Concomitant]
     Route: 042

REACTIONS (3)
  - COLITIS ULCERATIVE [None]
  - DRUG INEFFECTIVE [None]
  - TREMOR [None]
